FAERS Safety Report 9197913 (Version 1)
Quarter: 2013Q1

REPORT INFORMATION
  Report Type: Report from Study
  Country: US (occurrence: US)
  Receive Date: 20130328
  Receipt Date: 20130328
  Transmission Date: 20140127
  Serious: Yes (Hospitalization)
  Sender: FDA-Public Use
  Company Number: US-US-EMD SERONO, INC.-7201564

PATIENT
  Age: 45 None
  Sex: Female

DRUGS (3)
  1. REBIF [Suspect]
     Indication: PRODUCT USED FOR UNKNOWN INDICATION
     Route: 058
     Dates: start: 20121015
  2. ALEVE [Concomitant]
     Indication: PREMEDICATION
  3. MOTRIN [Concomitant]
     Indication: PREMEDICATION

REACTIONS (4)
  - Dehydration [Unknown]
  - Central nervous system lesion [Unknown]
  - Injection site erythema [Unknown]
  - Injection site pain [Unknown]
